FAERS Safety Report 24985689 (Version 2)
Quarter: 2025Q3

REPORT INFORMATION
  Report Type: Spontaneous
  Country: CN (occurrence: CN)
  Receive Date: 20250219
  Receipt Date: 20250810
  Transmission Date: 20251020
  Serious: No
  Sender: ALEXION PHARMACEUTICALS
  Company Number: CN-AstraZeneca-2017SE06603

PATIENT
  Sex: Female
  Weight: 54 kg

DRUGS (1)
  1. ESOMEPRAZOLE SODIUM [Suspect]
     Active Substance: ESOMEPRAZOLE SODIUM
     Indication: Abdominal discomfort
     Dosage: 40 MILLIGRAM, QD
     Dates: start: 20160713, end: 20160716

REACTIONS (2)
  - Hypoacusis [Recovering/Resolving]
  - Vision blurred [Recovering/Resolving]
